FAERS Safety Report 9931929 (Version 2)
Quarter: 2014Q1

REPORT INFORMATION
  Report Type: Report from Study
  Country: NL (occurrence: NL)
  Receive Date: 20140228
  Receipt Date: 20140228
  Transmission Date: 20141002
  Serious: Yes (Hospitalization, Other)
  Sender: FDA-Public Use
  Company Number: NL-ROCHE-1138393

PATIENT
  Age: 54 Year
  Sex: Female
  Weight: 71 kg

DRUGS (8)
  1. TRASTUZUMAB [Suspect]
     Indication: PRODUCT USED FOR UNKNOWN INDICATION
     Dosage: LAST DOSE: 11/JAN/2012
     Route: 042
     Dates: start: 20111026
  2. DOXORUBIN [Suspect]
     Indication: BREAST CANCER
     Dosage: DATE OF LAST DOSE PRIOR TO SAE: 05/OCT/2011
     Route: 042
     Dates: start: 20110803
  3. CYCLOPHOSPHAMIDE [Suspect]
     Indication: BREAST CANCER
     Dosage: DATE OF LAST DOSE PRIOR TO SAE: 05/OCT/2011
     Route: 042
     Dates: start: 20110803
  4. PACLITAXEL [Suspect]
     Indication: BREAST CANCER
     Dosage: DATE OF LAST DOSE PRIOR TO SAE: 11/JAN/2012
     Route: 042
     Dates: start: 20111026, end: 20120111
  5. PACLITAXEL [Suspect]
     Route: 042
     Dates: start: 20111221
  6. TAMOXIFEN [Suspect]
     Indication: BREAST CANCER
     Dosage: DATE OF LAST DOSE PRIOR TO SAE: 05/MAR/2012
     Route: 048
     Dates: start: 20120201
  7. ASCAL [Concomitant]
     Route: 048
     Dates: start: 20120610
  8. TAMOXIFEN [Concomitant]
     Route: 048
     Dates: start: 20120128

REACTIONS (2)
  - Dyspnoea exertional [Recovered/Resolved]
  - Angina pectoris [Recovered/Resolved]
